FAERS Safety Report 4622433-0 (Version None)
Quarter: 2005Q1

REPORT INFORMATION
  Report Type: 
  Country: None (occurrence: None)
  Receive Date: 20050325
  Receipt Date: 20050325
  Transmission Date: 20050727
  Serious: Yes (Hospitalization)
  Sender: FDA-Public Use
  Company Number: None

PATIENT
  Sex: Male

DRUGS (6)
  1. TAXOL [Suspect]
     Indication: LUNG NEOPLASM MALIGNANT
     Dosage: 80 MG/M2 IV Q WK
     Route: 042
     Dates: start: 20040204
  2. TAXOL [Suspect]
     Indication: LUNG NEOPLASM MALIGNANT
     Dosage: 80 MG/M2 IV Q WK
     Route: 042
     Dates: start: 20050211
  3. TAXOL [Suspect]
     Indication: LUNG NEOPLASM MALIGNANT
     Dosage: 80 MG/M2 IV Q WK
     Route: 042
     Dates: start: 20050225
  4. TAXOL [Suspect]
     Indication: LUNG NEOPLASM MALIGNANT
     Dosage: 80 MG/M2 IV Q WK
     Route: 042
     Dates: start: 20050304
  5. CARBOPLATIN [Suspect]
     Indication: LUNG NEOPLASM MALIGNANT
     Dosage: AUC 6 Q 21 DAYS
     Dates: start: 20050204
  6. CARBOPLATIN [Suspect]
     Indication: LUNG NEOPLASM MALIGNANT
     Dosage: AUC 6 Q 21 DAYS
     Dates: start: 20050225

REACTIONS (4)
  - BODY TEMPERATURE INCREASED [None]
  - CHILLS [None]
  - DYSPNOEA EXERTIONAL [None]
  - FATIGUE [None]
